FAERS Safety Report 7636104-X (Version None)
Quarter: 2011Q3

REPORT INFORMATION
  Report Type: 
  Country: None (occurrence: None)
  Receive Date: 20110726
  Receipt Date: 20110718
  Transmission Date: 20111222
  Serious: Yes (Death)
  Sender: FDA-Public Use
  Company Number: VN-ROCHE-791158

PATIENT
  Age: 13 Year
  Sex: Female
  Weight: 28 kg

DRUGS (2)
  1. OSELTAMIVIR [Suspect]
     Dosage: INITIAL DOSE, SECOND DOSE AFTER 6 HRS AND THIRD DOSE WITHIN 24 HRS AFTER ADMISSION
     Route: 065
     Dates: start: 20050101
  2. OSELTAMIVIR [Suspect]
     Route: 065

REACTIONS (2)
  - DRUG INEFFECTIVE [None]
  - PATHOGEN RESISTANCE [None]
